FAERS Safety Report 9288154 (Version 3)
Quarter: 2014Q3

REPORT INFORMATION
  Report Type: Spontaneous
  Country: US (occurrence: US)
  Receive Date: 20130514
  Receipt Date: 20140826
  Transmission Date: 20150326
  Serious: Yes (Hospitalization, Other)
  Sender: FDA-Public Use
  Company Number: US-009507513-2012SP030195

PATIENT
  Sex: Female
  Weight: 65.31 kg

DRUGS (2)
  1. NUVARING [Suspect]
     Active Substance: ETHINYL ESTRADIOL\ETONOGESTREL
     Indication: MENORRHAGIA
  2. NUVARING [Suspect]
     Active Substance: ETHINYL ESTRADIOL\ETONOGESTREL
     Indication: MENSTRUATION IRREGULAR
     Dosage: UNK
     Dates: start: 200905, end: 20100617

REACTIONS (11)
  - Off label use [Unknown]
  - Bronchitis [Unknown]
  - Vesicoureteric reflux [Unknown]
  - Functional residual capacity decreased [Unknown]
  - Lung disorder [Not Recovered/Not Resolved]
  - Ureteric operation [Unknown]
  - Chest pain [Unknown]
  - Pulmonary embolism [Recovered/Resolved]
  - Ligament sprain [Unknown]
  - Pain in extremity [Unknown]
  - Contusion [Unknown]

NARRATIVE: CASE EVENT DATE: 201002
